FAERS Safety Report 6645503-4 (Version None)
Quarter: 2010Q1

REPORT INFORMATION
  Report Type: 
  Country: None (occurrence: None)
  Receive Date: 20100323
  Receipt Date: 20100309
  Transmission Date: 20100710
  Serious: Yes (Hospitalization)
  Sender: FDA-Public Use
  Company Number: GB-RANBAXY-2010RR-32493

PATIENT
  Age: 33 Year
  Sex: Male

DRUGS (3)
  1. IBUPROFEN [Suspect]
     Indication: TOOTHACHE
     Dosage: 600 MG, TID
     Route: 048
     Dates: start: 20090828, end: 20090901
  2. AMOXICILLIN [Concomitant]
     Indication: TOOTH INFECTION
     Dosage: 500 MG, TID
     Route: 048
     Dates: start: 20090901
  3. PARACETAMOL [Concomitant]
     Indication: TOOTHACHE
     Dosage: 1 G, UNK
     Route: 048
     Dates: start: 20090829, end: 20090831

REACTIONS (3)
  - BACK PAIN [None]
  - NEPHRITIS [None]
  - PROTEINURIA [None]
